FAERS Safety Report 5563255-6 (Version None)
Quarter: 2007Q4

REPORT INFORMATION
  Report Type: 
  Country: None (occurrence: None)
  Receive Date: 20071212
  Receipt Date: 20071203
  Transmission Date: 20080405
  Serious: Yes (Other)
  Sender: FDA-Public Use
  Company Number: 2007336701

PATIENT
  Age: 3 Year
  Sex: Male

DRUGS (1)
  1. SUDACARE NIGHTTIME VAPOR-PLUG (MENTHOL, EUCALYPTUS OIL) [Suspect]
     Dosage: UNSPECIFIED,OPHTHALMIC
     Route: 047
     Dates: start: 20071203

REACTIONS (3)
  - ACCIDENTAL EXPOSURE [None]
  - CHEMICAL BURN OF SKIN [None]
  - EYE IRRITATION [None]
